FAERS Safety Report 9952619 (Version 1)
Quarter: 2014Q1

REPORT INFORMATION
  Report Type: Spontaneous
  Country: AU (occurrence: AU)
  Receive Date: 20140304
  Receipt Date: 20140304
  Transmission Date: 20141002
  Serious: Yes (Other)
  Sender: FDA-Public Use
  Company Number: AU-PFIZER INC-2014055779

PATIENT
  Age: 37 Year
  Sex: Male

DRUGS (2)
  1. LYRICA [Suspect]
     Indication: MUSCLE STRAIN
     Dosage: 150 MG, 2X/DAY
     Dates: start: 20140213
  2. VOLTAREN [Concomitant]
     Indication: MUSCLE STRAIN
     Dosage: UNK
     Dates: start: 20140213

REACTIONS (3)
  - Off label use [Unknown]
  - Neutrophil count decreased [Unknown]
  - Blood triglycerides increased [Unknown]
